FAERS Safety Report 4424138-8 (Version None)
Quarter: 2004Q3

REPORT INFORMATION
  Report Type: 
  Country: None (occurrence: None)
  Receive Date: 20040810
  Receipt Date: 20040810
  Transmission Date: 20050211
  Serious: Yes (Other)
  Sender: FDA-Public Use
  Company Number: None

PATIENT
  Age: 54 Year
  Sex: Male

DRUGS (1)
  1. OXYCODONE ER [Suspect]
     Dosage: 80 MG 1 PO Q 8 HRS
     Route: 048
     Dates: start: 20040629

REACTIONS (4)
  - DRUG EFFECT DECREASED [None]
  - IMPAIRED WORK ABILITY [None]
  - PAIN [None]
  - PHARMACEUTICAL PRODUCT COMPLAINT [None]
